FAERS Safety Report 10457564 (Version 2)
Quarter: 2015Q1

REPORT INFORMATION
  Report Type: Spontaneous
  Country: BR (occurrence: BR)
  Receive Date: 20140916
  Receipt Date: 20150216
  Transmission Date: 20150720
  Serious: Yes (Hospitalization, Other)
  Sender: FDA-Public Use
  Company Number: PHHY2014BR119760

PATIENT
  Age: 78 Year
  Sex: Male

DRUGS (3)
  1. AMLODIPINE [Concomitant]
     Active Substance: AMLODIPINE BESYLATE
     Indication: HYPERTENSION
     Dosage: 1 DF, QD
     Route: 048
  2. EXELON PATCH [Suspect]
     Active Substance: RIVASTIGMINE
     Indication: DEMENTIA ALZHEIMER^S TYPE
     Dosage: 27 MG (15 CM2), EVERY 24 HOURS
     Route: 062
  3. SEROQUEL [Suspect]
     Active Substance: QUETIAPINE FUMARATE
     Indication: AGITATION
     Dosage: 1 DF, QD
     Route: 048

REACTIONS (9)
  - Graft infection [Unknown]
  - Skin cancer [Unknown]
  - Depression [Unknown]
  - Confusional state [Unknown]
  - Diabetes mellitus [Unknown]
  - Dizziness [Unknown]
  - Dysentery [Recovered/Resolved]
  - Metastases to central nervous system [Unknown]
  - Insomnia [Unknown]
